FAERS Safety Report 8866034 (Version 1)
Quarter: 2012Q4

REPORT INFORMATION
  Report Type: 
  Country: US (occurrence: US)
  Receive Date: 20121025
  Receipt Date: 20121025
  Transmission Date: 20130627
  Serious: No
  Sender: FDA-Public Use
  Company Number: US-ABBOTT-12P-163-0971288-00

PATIENT
  Sex: Female
  Weight: 156.63 kg

DRUGS (1)
  1. LUPRON DEPOT [Suspect]
     Indication: UTERINE LEIOMYOMA
     Dosage: One dose
     Dates: start: 20120731, end: 20120731

REACTIONS (1)
  - Deep vein thrombosis [Unknown]
